FAERS Safety Report 14491234 (Version 1)
Quarter: 2018Q1

REPORT INFORMATION
  Report Type: Report from Study
  Country: US (occurrence: US)
  Receive Date: 20180206
  Receipt Date: 20180206
  Transmission Date: 20180509
  Serious: Yes (Other)
  Sender: FDA-Public Use
  Company Number: US-B.I. PHARMACEUTICALS,INC./RIDGEFIELD-2018-BI-005794

PATIENT
  Sex: Female

DRUGS (1)
  1. SPIRIVA [Suspect]
     Active Substance: TIOTROPIUM BROMIDE MONOHYDRATE
     Indication: PRODUCT USED FOR UNKNOWN INDICATION
     Dosage: FORMULATION: 3 BLISTER PACK IN 1CARTON (0597-0075-41) } 10CAPSULE IN 1 BLISTER PACK
     Route: 065

REACTIONS (5)
  - Cerebral arteriosclerosis [Unknown]
  - Glaucoma [Unknown]
  - Uterine leiomyoma [Unknown]
  - Blindness unilateral [Unknown]
  - Blood calcium abnormal [Unknown]
